FAERS Safety Report 10699848 (Version 1)
Quarter: 2014Q4

REPORT INFORMATION
  Report Type: Spontaneous
  Country: IT (occurrence: IT)
  Receive Date: 20141001
  Receipt Date: 20141001
  Transmission Date: 20150529
  Serious: Yes (Other)
  Sender: FDA-Public Use
  Company Number: IT-APOTEX-2014AP004904

PATIENT
  Age: 29 Year
  Sex: Female

DRUGS (4)
  1. CITALOPRAM [Suspect]
     Active Substance: CITALOPRAM HYDROBROMIDE
     Indication: PANIC DISORDER WITH AGORAPHOBIA
     Dosage: 20 MG/DAY
     Route: 065
  2. ESOMEPRAZOLE [Concomitant]
     Active Substance: ESOMEPRAZOLE
     Indication: SOMATOFORM DISORDER GASTROINTESTINAL
     Dosage: UNK
     Route: 065
  3. ALGINIC ACID, SODIUM BICARBONATE [Concomitant]
     Indication: SOMATOFORM DISORDER GASTROINTESTINAL
     Route: 065
  4. CLEBOPRIDE [Concomitant]
     Indication: SOMATOFORM DISORDER GASTROINTESTINAL
     Route: 065

REACTIONS (3)
  - Female sexual dysfunction [Unknown]
  - Cognitive disorder [Unknown]
  - Fatigue [Unknown]
